FAERS Safety Report 6478016-3 (Version None)
Quarter: 2009Q4

REPORT INFORMATION
  Report Type: 
  Country: None (occurrence: None)
  Receive Date: 20091207
  Receipt Date: 20091204
  Transmission Date: 20100525
  Serious: Yes (Hospitalization)
  Sender: FDA-Public Use
  Company Number: B0611403A

PATIENT
  Sex: Female

DRUGS (5)
  1. ARIXTRA [Suspect]
     Indication: PHLEBITIS
     Dosage: 7.5MG PER DAY
     Route: 058
     Dates: start: 20090822
  2. LODOZ [Concomitant]
     Dosage: 5MG PER DAY
     Route: 065
  3. TAREG [Concomitant]
     Route: 065
  4. PARACETAMOL [Concomitant]
     Indication: ANALGESIC THERAPY
     Route: 065
  5. PYOSTACINE [Concomitant]
     Indication: ERYSIPELAS
     Dosage: 1000MG THREE TIMES PER DAY
     Route: 048
     Dates: start: 20090822

REACTIONS (14)
  - ABDOMINAL PAIN UPPER [None]
  - ARTERIAL HAEMORRHAGE [None]
  - FAECES DISCOLOURED [None]
  - GENERAL PHYSICAL HEALTH DETERIORATION [None]
  - HAEMOGLOBIN DECREASED [None]
  - HYDRONEPHROSIS [None]
  - HYPOTENSION [None]
  - INTESTINAL ISCHAEMIA [None]
  - INTRA-ABDOMINAL HAEMATOMA [None]
  - OLIGURIA [None]
  - PALLOR [None]
  - RENAL FAILURE ACUTE [None]
  - SHOCK HAEMORRHAGIC [None]
  - VOMITING [None]
